FAERS Safety Report 12683612 (Version 1)
Quarter: 2016Q3

REPORT INFORMATION
  Report Type: Spontaneous
  Country: None (occurrence: None)
  Receive Date: 20160824
  Receipt Date: 20160824
  Transmission Date: 20161109
  Serious: No
  Sender: FDA-Public Use
  Company Number: None

PATIENT
  Age: 26 Year
  Sex: Male

DRUGS (1)
  1. HALOPERIDOL. [Suspect]
     Active Substance: HALOPERIDOL

REACTIONS (7)
  - Leukocytosis [None]
  - Muscle rigidity [None]
  - Skin warm [None]
  - Blood creatine phosphokinase increased [None]
  - Hypertension [None]
  - Tachycardia [None]
  - Hypersensitivity [None]

NARRATIVE: CASE EVENT DATE: 20160614
